FAERS Safety Report 25724386 (Version 1)
Quarter: 2025Q3

REPORT INFORMATION
  Report Type: Spontaneous
  Country: US (occurrence: US)
  Receive Date: 20250826
  Receipt Date: 20250826
  Transmission Date: 20251021
  Serious: No
  Sender: ZYDUS PHARM
  Company Number: US-CADILA HEALTHCARE LIMITED-US-ZYDUS-127418

PATIENT

DRUGS (2)
  1. ISOTRETINOIN [Suspect]
     Active Substance: ISOTRETINOIN
     Indication: Product used for unknown indication
     Route: 065
     Dates: start: 20250701
  2. ISOTRETINOIN [Concomitant]
     Active Substance: ISOTRETINOIN
     Indication: Product used for unknown indication
     Route: 065
     Dates: start: 202507

REACTIONS (2)
  - Product use issue [Unknown]
  - Insurance issue [Unknown]

NARRATIVE: CASE EVENT DATE: 20250806
